FAERS Safety Report 10213298 (Version 2)
Quarter: 2014Q2

REPORT INFORMATION
  Report Type: Spontaneous
  Country: US (occurrence: None)
  Receive Date: 20140529
  Receipt Date: 20140619
  Transmission Date: 20141212
  Serious: Yes (Hospitalization)
  Sender: FDA-Public Use
  Company Number: 20140294

PATIENT
  Age: 75 Year
  Sex: Female

DRUGS (11)
  1. INJECTAFER [Suspect]
     Indication: ANAEMIA
     Dosage: DOSE UNKNOWN
     Route: 042
     Dates: start: 20140409, end: 20140416
  2. PROCRIT (ERYTHROOPOIETIN) [Concomitant]
  3. VESICARE (SOLIFENACIN) [Concomitant]
  4. ARICEPT (DONEPEZIL) [Concomitant]
  5. ELIQUIS (APIXABAN) [Concomitant]
  6. HUMALOG (INSULIN) [Concomitant]
  7. CYCLOSPORINE [Concomitant]
  8. OMEPRAZOLE [Concomitant]
  9. VITAMINS [Concomitant]
  10. LOVASTATIN [Concomitant]
  11. FOLIC ACID [Concomitant]

REACTIONS (5)
  - Delayed recovery from anaesthesia [None]
  - Asthenia [None]
  - Fatigue [None]
  - Drug ineffective [None]
  - Pulmonary oedema [None]
